FAERS Safety Report 4339596-7 (Version None)
Quarter: 2004Q1

REPORT INFORMATION
  Report Type: 
  Country: None (occurrence: None)
  Receive Date: 20040329
  Receipt Date: 20040108
  Transmission Date: 20041129
  Serious: No
  Sender: FDA-Public Use
  Company Number: 04P-163-0246366-00

PATIENT
  Age: 46 Year
  Sex: Female
  Weight: 99.7913 kg

DRUGS (5)
  1. HUMIRA [Suspect]
     Indication: RHEUMATOID ARTHRITIS
     Dates: start: 20031001
  2. METHOTREXATE [Concomitant]
  3. FOLIC ACID [Concomitant]
  4. LEVOTHYROXINE SODIUM [Concomitant]
  5. NAPROSYN [Concomitant]

REACTIONS (5)
  - ABNORMAL DREAMS [None]
  - MIDDLE INSOMNIA [None]
  - MOOD SWINGS [None]
  - NIGHT SWEATS [None]
  - PALPITATIONS [None]
